FAERS Safety Report 9907338 (Version 2)
Quarter: 2014Q1

REPORT INFORMATION
  Report Type: Spontaneous
  Country: US (occurrence: US)
  Receive Date: 20140218
  Receipt Date: 20140218
  Transmission Date: 20141002
  Serious: Yes (Disabling, Other)
  Sender: FDA-Public Use
  Company Number: US-GE HEALTHCARE MEDICAL DIAGNOSTICS-OSCN-PR-0806S-0350

PATIENT
  Age: 34 Year
  Sex: Male

DRUGS (16)
  1. OMNISCAN [Suspect]
     Indication: PHOTOPSIA
     Route: 042
     Dates: start: 20051206, end: 20051206
  2. OMNISCAN [Suspect]
     Route: 042
     Dates: start: 20060201, end: 20060201
  3. MAGNEVIST [Suspect]
     Indication: RENAL DISORDER
     Route: 042
     Dates: start: 20051129, end: 20051129
  4. MAGNEVIST [Suspect]
     Indication: MASS
     Route: 042
     Dates: start: 20060202, end: 20060202
  5. RENAGEL [Concomitant]
     Indication: PRODUCT USED FOR UNKNOWN INDICATION
  6. HYDROCORTISONE [Concomitant]
     Indication: PRODUCT USED FOR UNKNOWN INDICATION
  7. BENAZEPRIL [Concomitant]
     Indication: PRODUCT USED FOR UNKNOWN INDICATION
  8. PHOSLO [Concomitant]
     Indication: PRODUCT USED FOR UNKNOWN INDICATION
  9. CINACALCET [Concomitant]
     Indication: PRODUCT USED FOR UNKNOWN INDICATION
  10. ALTACE [Concomitant]
     Indication: PRODUCT USED FOR UNKNOWN INDICATION
  11. HECTOROL [Concomitant]
     Indication: PRODUCT USED FOR UNKNOWN INDICATION
  12. VENOFER [Concomitant]
     Indication: PRODUCT USED FOR UNKNOWN INDICATION
  13. BACLOFEN [Concomitant]
     Indication: PRODUCT USED FOR UNKNOWN INDICATION
  14. OXYCONTIN [Concomitant]
     Indication: PRODUCT USED FOR UNKNOWN INDICATION
  15. LORTAB [Concomitant]
     Indication: PRODUCT USED FOR UNKNOWN INDICATION
  16. DURAGESIC [Concomitant]
     Indication: PAIN
     Route: 062

REACTIONS (1)
  - Nephrogenic systemic fibrosis [Not Recovered/Not Resolved]
